FAERS Safety Report 21025374 (Version 3)
Quarter: 2022Q3

REPORT INFORMATION
  Report Type: Report from Study
  Country: US (occurrence: US)
  Receive Date: 20220630
  Receipt Date: 20220719
  Transmission Date: 20221027
  Serious: Yes (Other)
  Sender: FDA-Public Use
  Company Number: US-NOVARTISTESTPH-NVSC2022US148817

PATIENT
  Sex: Male

DRUGS (1)
  1. ENTRESTO [Suspect]
     Active Substance: SACUBITRIL\VALSARTAN
     Indication: Product used for unknown indication
     Dosage: 1 DOSAGE FORM, BID(24/26MG)
     Route: 065

REACTIONS (5)
  - Plasma cell myeloma [Recovering/Resolving]
  - Carotid artery occlusion [Unknown]
  - Hypertension [Recovering/Resolving]
  - Fall [Unknown]
  - Dyspnoea exertional [Unknown]
